FAERS Safety Report 5903347-2 (Version None)
Quarter: 2008Q3

REPORT INFORMATION
  Report Type: 
  Country: None (occurrence: None)
  Receive Date: 20080926
  Receipt Date: 20080915
  Transmission Date: 20090109
  Serious: Yes (Hospitalization)
  Sender: FDA-Public Use
  Company Number: 1-16642420

PATIENT
  Age: 73 Year
  Sex: Female

DRUGS (10)
  1. FLUCONAZOLE [Suspect]
     Dosage: 100 MG DAILY, ORAL
     Route: 048
  2. CITALOPRAM HYDROBROMIDE [Suspect]
     Indication: DEPRESSION
     Dosage: 40 MG DAILY, ORAL
     Route: 048
  3. METOPROLOL SUCCINATE [Concomitant]
  4. ACYCLOVIR SODIUM [Concomitant]
  5. VANCOMYCIN HYDROCHLORIDE [Concomitant]
  6. AMLODIPINE [Concomitant]
  7. VALSARTAN [Concomitant]
  8. PANTOPRAZOLE SODIUM [Concomitant]
  9. CLONAZEPAM [Concomitant]
  10. LEVOFLOXACIN [Concomitant]

REACTIONS (11)
  - BLOOD POTASSIUM DECREASED [None]
  - BLOOD SODIUM DECREASED [None]
  - DELIRIUM [None]
  - DISORIENTATION [None]
  - DRUG INTERACTION [None]
  - DRUG TOXICITY [None]
  - HAEMOGLOBIN DECREASED [None]
  - NEUTROPENIA [None]
  - PLATELET COUNT DECREASED [None]
  - SEROTONIN SYNDROME [None]
  - SOMNOLENCE [None]
